FAERS Safety Report 7345837-4 (Version None)
Quarter: 2011Q1

REPORT INFORMATION
  Report Type: 
  Country: None (occurrence: None)
  Receive Date: 20110311
  Receipt Date: 20110302
  Transmission Date: 20110831
  Serious: Yes (Hospitalization)
  Sender: FDA-Public Use
  Company Number: US-BIOGENIDEC-2010BI002365

PATIENT
  Age: 35 Year
  Sex: Female
  Weight: 102 kg

DRUGS (1)
  1. TYSABRI [Suspect]
     Indication: MULTIPLE SCLEROSIS
     Route: 042
     Dates: start: 20070109

REACTIONS (8)
  - NASOPHARYNGITIS [None]
  - LOWER LIMB FRACTURE [None]
  - PNEUMONIA [None]
  - HEADACHE [None]
  - VITAMIN D DEFICIENCY [None]
  - FATIGUE [None]
  - BRONCHITIS [None]
  - HEARING IMPAIRED [None]
